FAERS Safety Report 4925962-5 (Version None)
Quarter: 2006Q1

REPORT INFORMATION
  Report Type: 
  Country: None (occurrence: None)
  Receive Date: 20060228
  Receipt Date: 20060221
  Transmission Date: 20060701
  Serious: Yes (Death)
  Sender: FDA-Public Use
  Company Number: US-BRISTOL-MYERS SQUIBB COMPANY-13291679

PATIENT
  Age: 63 Year
  Sex: Female

DRUGS (2)
  1. GLUCOPHAGE [Suspect]
  2. MONOPRIL TABS 40 MG [Suspect]

REACTIONS (1)
  - PULMONARY EMBOLISM [None]
